FAERS Safety Report 16221482 (Version 1)
Quarter: 2019Q2

REPORT INFORMATION
  Report Type: Spontaneous
  Country: CN (occurrence: CN)
  Receive Date: 20190422
  Receipt Date: 20190422
  Transmission Date: 20190711
  Serious: Yes (Other)
  Sender: FDA-Public Use
  Company Number: CN-BRISTOL-MYERS SQUIBB COMPANY-BMS-2019-033301

PATIENT
  Sex: Female

DRUGS (1)
  1. DASATINIB. [Suspect]
     Active Substance: DASATINIB
     Indication: ACUTE LYMPHOCYTIC LEUKAEMIA
     Dosage: 140 MILLIGRAM, QD
     Route: 048
     Dates: start: 20160324

REACTIONS (4)
  - Acquired gene mutation [Recovering/Resolving]
  - Thrombocytopenia [Recovering/Resolving]
  - Drug resistance [Recovering/Resolving]
  - Acute lymphocytic leukaemia recurrent [Recovering/Resolving]

NARRATIVE: CASE EVENT DATE: 201704
